FAERS Safety Report 14937673 (Version 1)
Quarter: 2018Q2

REPORT INFORMATION
  Report Type: Report from Study
  Country: CA (occurrence: CA)
  Receive Date: 20180525
  Receipt Date: 20180525
  Transmission Date: 20180711
  Serious: Yes (Other)
  Sender: FDA-Public Use
  Company Number: PHHY2014CA057878

PATIENT
  Age: 66 Year
  Sex: Male

DRUGS (4)
  1. SANDOSTATIN [Suspect]
     Active Substance: OCTREOTIDE ACETATE
     Indication: PANCREATITIS CHRONIC
     Dosage: 100 UG, TID FOR 2 WEEKS
     Route: 065
     Dates: start: 20160808
  2. SANDOSTATIN LAR DEPOT [Suspect]
     Active Substance: OCTREOTIDE ACETATE
     Dosage: 20 MG, QMO
     Route: 030
     Dates: end: 20160531
  3. SANDOSTATIN LAR DEPOT [Suspect]
     Active Substance: OCTREOTIDE ACETATE
     Indication: PANCREATITIS CHRONIC
     Dosage: 20 MG, QMO
     Route: 030
     Dates: start: 20130830
  4. CREON [Suspect]
     Active Substance: PANCRELIPASE AMYLASE\PANCRELIPASE LIPASE\PANCRELIPASE PROTEASE
     Indication: PANCREATIC DISORDER
     Dosage: UNK
     Route: 065
     Dates: end: 201404

REACTIONS (16)
  - Peptic ulcer [Unknown]
  - Lacrimation increased [Unknown]
  - Heart rate decreased [Unknown]
  - Ulcer [Unknown]
  - Dry eye [Unknown]
  - Abdominal pain upper [Not Recovered/Not Resolved]
  - Renal cyst [Unknown]
  - Ocular rosacea [Unknown]
  - Blood pressure systolic increased [Unknown]
  - Mass [Not Recovered/Not Resolved]
  - Stenosis [Unknown]
  - Eye disorder [Unknown]
  - Ocular hyperaemia [Not Recovered/Not Resolved]
  - Stress [Unknown]
  - Cyst [Unknown]
  - Fatigue [Unknown]

NARRATIVE: CASE EVENT DATE: 20150721
